FAERS Safety Report 9312012 (Version 1)
Quarter: 2013Q2

REPORT INFORMATION
  Report Type: Report from Study
  Country: JP (occurrence: JP)
  Receive Date: 20130528
  Receipt Date: 20130528
  Transmission Date: 20140414
  Serious: Yes (Death, Other)
  Sender: FDA-Public Use
  Company Number: JP-009507513-1305JPN015408

PATIENT
  Age: 76 Year
  Sex: Male
  Weight: 44 kg

DRUGS (8)
  1. TEMOZOLOMIDE [Suspect]
     Indication: GLIOBLASTOMA MULTIFORME
     Dosage: 150 MG/M2, QD
     Route: 042
     Dates: start: 20120705, end: 20120709
  2. TEMOZOLOMIDE [Suspect]
     Dosage: 200 MG/M2, QD
     Route: 042
     Dates: start: 20120802, end: 20120802
  3. TEMOZOLOMIDE [Suspect]
     Dosage: 150 MG/M2, QD
     Dates: start: 20120803, end: 20120806
  4. TEMODAL CAPSULES 20MG [Suspect]
     Indication: GLIOBLASTOMA MULTIFORME
     Dosage: UNK
     Route: 048
     Dates: start: 201207, end: 20121003
  5. BAKTAR [Concomitant]
     Indication: ANTIFUNGAL PROPHYLAXIS
     Dosage: UNK
     Dates: start: 20120712, end: 20120803
  6. BAKTAR [Concomitant]
     Dosage: UNK
     Route: 048
     Dates: start: 20120815, end: 20120831
  7. ALEVIATIN [Concomitant]
     Dosage: UNK
     Route: 048
     Dates: end: 20121207
  8. TEGRETOL [Concomitant]
     Dosage: UNK
     Route: 048
     Dates: end: 20121207

REACTIONS (5)
  - Disease progression [Fatal]
  - Pneumonia aspiration [Fatal]
  - Convulsion [Recovering/Resolving]
  - Cystitis [Recovered/Resolved]
  - Activities of daily living impaired [None]
